FAERS Safety Report 10357834 (Version 3)
Quarter: 2015Q3

REPORT INFORMATION
  Report Type: Report from Study
  Country: US (occurrence: US)
  Receive Date: 20140801
  Receipt Date: 20150924
  Transmission Date: 20151125
  Serious: Yes (Hospitalization)
  Sender: FDA-Public Use
  Company Number: US-ACTELION-A-NJ2014-102744

PATIENT
  Age: 88 Year
  Sex: Female

DRUGS (1)
  1. TRACLEER [Suspect]
     Active Substance: BOSENTAN
     Indication: PULMONARY ARTERIAL HYPERTENSION
     Dosage: UNK
     Route: 048
     Dates: start: 20130121

REACTIONS (7)
  - Pneumonia [Unknown]
  - Asthenia [Unknown]
  - Blood potassium decreased [Unknown]
  - Hypotension [Unknown]
  - Cardiac murmur [Unknown]
  - Dyspnoea [Unknown]
  - Fall [Unknown]
